FAERS Safety Report 6945112-3 (Version None)
Quarter: 2010Q3

REPORT INFORMATION
  Report Type: 
  Country: None (occurrence: None)
  Receive Date: 20100827
  Receipt Date: 20100820
  Transmission Date: 20110219
  Serious: Yes (Hospitalization)
  Sender: FDA-Public Use
  Company Number: US-JNJFOC-20100800458

PATIENT
  Sex: Female
  Weight: 54.7 kg

DRUGS (3)
  1. INFLIXIMAB, RECOMBINANT [Suspect]
     Indication: INFLAMMATORY BOWEL DISEASE
     Route: 042
  2. HUMIRA [Concomitant]
  3. LYRICA [Concomitant]

REACTIONS (2)
  - ABDOMINAL PAIN [None]
  - HYPOPHAGIA [None]
